FAERS Safety Report 7751574-4 (Version None)
Quarter: 2011Q3

REPORT INFORMATION
  Report Type: 
  Country: None (occurrence: None)
  Receive Date: 20110914
  Receipt Date: 20110908
  Transmission Date: 20111222
  Serious: Yes (Hospitalization)
  Sender: FDA-Public Use
  Company Number: PHEH2011US03810

PATIENT
  Sex: Male
  Weight: 71.202 kg

DRUGS (1)
  1. EXJADE [Suspect]
     Indication: HAEMATOPOIETIC NEOPLASM
     Dosage: 1000 MG, DAILY
     Route: 048
     Dates: start: 20090619

REACTIONS (1)
  - PNEUMONIA [None]
